FAERS Safety Report 24688873 (Version 1)
Quarter: 2024Q4

REPORT INFORMATION
  Report Type: Spontaneous
  Country: CO (occurrence: CO)
  Receive Date: 20241203
  Receipt Date: 20241203
  Transmission Date: 20250114
  Serious: Yes (Hospitalization, Other)
  Sender: CHEPLAPHARM
  Company Number: CO-CHEPLA-2024015069

PATIENT
  Age: 21 Year
  Sex: Male
  Weight: 53 kg

DRUGS (4)
  1. CLONAZEPAM [Suspect]
     Active Substance: CLONAZEPAM
     Dosage: 35 BAGS EACH WITH 100 TABLETS OF CLONAZEPAM (2 MG TABLET PRESENTATION),
  2. CANNABIS SATIVA FLOWERING TOP [Suspect]
     Active Substance: CANNABIS SATIVA FLOWERING TOP
     Dosage: 15 PACKAGES OF CANNABIS SATIVA OF UNSPECIFIED WEIGHT
  3. COCAINE [Suspect]
     Active Substance: COCAINE
     Dosage: 10 BAGS WITH COCAINE CONTENT
  4. SCOPOLAMINE [Suspect]
     Active Substance: SCOPOLAMINE

REACTIONS (10)
  - Constipation [Recovering/Resolving]
  - Loss of consciousness [Recovered/Resolved]
  - Tachycardia [Recovered/Resolved]
  - Anxiety [Recovered/Resolved]
  - Hypotension [Recovered/Resolved]
  - Hypoglycaemia [Recovered/Resolved]
  - Toxicity to various agents [Recovered/Resolved]
  - Cardiogenic shock [Recovered/Resolved]
  - Bradycardia [Recovered/Resolved]
  - Toxicity to various agents [Recovered/Resolved]
